FAERS Safety Report 5328006-9 (Version None)
Quarter: 2007Q2

REPORT INFORMATION
  Report Type: 
  Country: None (occurrence: None)
  Receive Date: 20070517
  Receipt Date: 20070508
  Transmission Date: 20071010
  Serious: Yes (Other)
  Sender: FDA-Public Use
  Company Number: SE-ABBOTT-07P-150-0368100-00

PATIENT
  Age: 58 Year
  Sex: Female

DRUGS (5)
  1. WARFARIN SODIUM [Suspect]
     Indication: DEEP VEIN THROMBOSIS
     Dosage: NOT REPORTED
  2. DALTEPARIN SODIUM [Interacting]
     Indication: DRUG USE FOR UNKNOWN INDICATION
  3. CITALOPRAM HYDROBROMIDE [Interacting]
     Indication: DRUG USE FOR UNKNOWN INDICATION
  4. SERTRALINE [Interacting]
     Indication: DRUG USE FOR UNKNOWN INDICATION
  5. PARACETAMOL [Interacting]
     Indication: DRUG USE FOR UNKNOWN INDICATION

REACTIONS (2)
  - CEREBRAL HAEMORRHAGE [None]
  - DRUG INTERACTION [None]
